FAERS Safety Report 6603827-0 (Version None)
Quarter: 2010Q1

REPORT INFORMATION
  Report Type: 
  Country: None (occurrence: None)
  Receive Date: 20100226
  Receipt Date: 20090715
  Transmission Date: 20100710
  Serious: No
  Sender: FDA-Public Use
  Company Number: A0768484A

PATIENT
  Age: 50 Year
  Sex: Female

DRUGS (9)
  1. LAMICTAL CD [Suspect]
     Indication: DRUG USE FOR UNKNOWN INDICATION
     Route: 048
     Dates: start: 20090122, end: 20090211
  2. LEVETIRACETAM [Concomitant]
     Dosage: 750MG PER DAY
  3. CRESTOR [Concomitant]
     Dosage: 10MG PER DAY
     Route: 048
  4. LEVOTHYROXINE [Concomitant]
     Dosage: 100MCG PER DAY
     Route: 048
  5. FLURAZEPAM [Concomitant]
     Dosage: 30MG AT NIGHT
  6. ADVAIR DISKUS 100/50 [Concomitant]
     Route: 048
  7. FLUTICASONE PROPIONATE [Concomitant]
     Route: 045
  8. SYSTANE [Concomitant]
  9. UNKNOWN [Concomitant]

REACTIONS (1)
  - RASH [None]
